FAERS Safety Report 7660029-7 (Version None)
Quarter: 2011Q3

REPORT INFORMATION
  Report Type: 
  Country: None (occurrence: None)
  Receive Date: 20110805
  Receipt Date: 20110804
  Transmission Date: 20111222
  Serious: Yes (Hospitalization)
  Sender: FDA-Public Use
  Company Number: AU-BAYER-2011-068370

PATIENT
  Age: 61 Year
  Sex: Male

DRUGS (2)
  1. ACETYLSALICYLIC ACID SRT [Concomitant]
     Indication: CARDIAC DISORDER
  2. ULTRAVIST 150 [Suspect]
     Indication: COMPUTERISED TOMOGRAM THORAX
     Dosage: UNK
     Dates: start: 20110803, end: 20110803

REACTIONS (8)
  - URINARY INCONTINENCE [None]
  - AGITATION [None]
  - HYPERHIDROSIS [None]
  - MALAISE [None]
  - BACK PAIN [None]
  - RASH PAPULAR [None]
  - MYOCARDIAL INFARCTION [None]
  - PARAESTHESIA [None]
